FAERS Safety Report 21795703 (Version 2)
Quarter: 2023Q2

REPORT INFORMATION
  Report Type: Report from Study
  Country: CN (occurrence: CN)
  Receive Date: 20221229
  Receipt Date: 20230613
  Transmission Date: 20230721
  Serious: Yes (Hospitalization)
  Sender: FDA-Public Use
  Company Number: CN-PFIZER INC-PV202200129095

PATIENT
  Age: 53 Year
  Sex: Female

DRUGS (10)
  1. EPIRUBICIN HYDROCHLORIDE [Suspect]
     Active Substance: EPIRUBICIN HYDROCHLORIDE
     Indication: Triple negative breast cancer
     Dosage: 90 MG/M2, CYCLIC (QW, THREE WEEK DOSING FOLLOWED BY ONE-WEEK INTERVAL) INTRAVENOUS IVGTT INFUSION
     Route: 042
     Dates: start: 20220824, end: 20221024
  2. INVESTIGATIONAL PRODUCT [Suspect]
     Active Substance: INVESTIGATIONAL PRODUCT
     Indication: Triple negative breast cancer
     Dosage: 1X/2 WEEKS, INTRAVENOUS IVGTT INFUSION
     Route: 042
     Dates: start: 20220428
  3. PACLITAXEL [Suspect]
     Active Substance: PACLITAXEL
     Indication: Triple negative breast cancer
     Dosage: 100 MG/M2, CYCLIC (QW, THREE-WEEK DOSING FOLLOWED BY ONE-WEEK INTERVAL) ALBUMIN BOUND, INTRAVENOUS I
     Route: 042
     Dates: start: 20220428, end: 20220817
  4. CARBOPLATIN [Suspect]
     Active Substance: CARBOPLATIN
     Indication: Triple negative breast cancer
     Dosage: AUC1.5, CYCLIC (QW, THREE-WEEK DOSING FOLLOWED BY ONE-WEEK INTERVAL), INTRAVENOUS IVGTT INFUSION
     Route: 042
     Dates: start: 20220428, end: 20220817
  5. CYCLOPHOSPHAMIDE [Suspect]
     Active Substance: CYCLOPHOSPHAMIDE
     Indication: Triple negative breast cancer
     Dosage: 500 MG/M2, CYCLIC (QW, THREE WEEK DOSING FOLLOWED BY ON-WEEK INTERVAL), INTRAVENOUS IVGTT INFUSION
     Route: 042
     Dates: start: 20220824, end: 20221024
  6. AN LE PIAN [Concomitant]
     Indication: Menopausal symptoms
     Dosage: 12 G, 1X/DAY
     Route: 048
     Dates: start: 20220420
  7. NIFEDIPINE [Concomitant]
     Active Substance: NIFEDIPINE
     Indication: Hypertension
     Dosage: 20 MG, 1X/DAY, SUSTAINED-RELEASE
     Route: 048
     Dates: start: 20220420
  8. ISOSORBIDE MONONITRATE [Concomitant]
     Active Substance: ISOSORBIDE MONONITRATE
     Indication: Cardiac disorder
     Dosage: 20 MG, 1X/DAY
     Route: 048
     Dates: start: 20220420
  9. ASPIRIN [Concomitant]
     Active Substance: ASPIRIN
     Indication: Cardiac disorder
     Dosage: 100 MG, 1X/DAY, ENTERIC COATED
     Route: 048
     Dates: start: 20220420
  10. TRIMETAZIDINE DIHYDROCHLORIDE [Concomitant]
     Active Substance: TRIMETAZIDINE DIHYDROCHLORIDE
     Indication: Cardiac disorder
     Dosage: 20 MG, 1X/DAY
     Route: 048
     Dates: start: 20220420

REACTIONS (2)
  - Decreased appetite [Recovering/Resolving]
  - Decreased appetite [Not Recovered/Not Resolved]

NARRATIVE: CASE EVENT DATE: 20221130
